FAERS Safety Report 25365661 (Version 1)
Quarter: 2025Q2

REPORT INFORMATION
  Report Type: Spontaneous
  Country: FR (occurrence: FR)
  Receive Date: 20250527
  Receipt Date: 20250527
  Transmission Date: 20250716
  Serious: Yes (Other)
  Sender: ABBVIE
  Company Number: None

PATIENT
  Age: 38 Year
  Sex: Female

DRUGS (3)
  1. NORVIR [Suspect]
     Active Substance: RITONAVIR
     Indication: HIV infection
     Route: 048
     Dates: start: 202502
  2. KENACORT [Suspect]
     Active Substance: TRIAMCINOLONE
     Indication: Keloid scar
     Dosage: 40 MG/1 ML, SUSPENSION INJECTABLE
     Route: 026
     Dates: start: 20250306, end: 20250407
  3. RIMIFON [Suspect]
     Active Substance: ISONIAZID
     Indication: Tuberculosis
     Route: 048
     Dates: start: 20250331, end: 20250422

REACTIONS (3)
  - Cushing^s syndrome [Not Recovered/Not Resolved]
  - Face oedema [Not Recovered/Not Resolved]
  - Drug interaction [Recovered/Resolved]

NARRATIVE: CASE EVENT DATE: 20250306
